FAERS Safety Report 24571880 (Version 4)
Quarter: 2025Q3

REPORT INFORMATION
  Report Type: Spontaneous
  Country: KR (occurrence: KR)
  Receive Date: 20241101
  Receipt Date: 20250904
  Transmission Date: 20251021
  Serious: Yes (Hospitalization)
  Sender: KOWA PHARM
  Company Number: KR-KOWA-24JP002124AA

PATIENT
  Age: 40 Year
  Sex: Male
  Weight: 63.8 kg

DRUGS (30)
  1. EZETIMIBE\PITAVASTATIN CALCIUM [Suspect]
     Active Substance: EZETIMIBE\PITAVASTATIN CALCIUM
     Indication: Dyslipidaemia
     Dosage: 2/10 MG, QD
     Route: 048
     Dates: start: 20230630
  2. NORVASC [Concomitant]
     Active Substance: AMLODIPINE BESYLATE
     Indication: Renal failure
     Dosage: 5 MG, QD
     Route: 048
     Dates: start: 20230529
  3. NEBIVOLOL [Concomitant]
     Active Substance: NEBIVOLOL
     Indication: Renal failure
     Dosage: 5 MG, QD
     Route: 048
     Dates: start: 20230601, end: 20240425
  4. NEBIVOLOL [Concomitant]
     Active Substance: NEBIVOLOL
     Dosage: 2.5 MG, QD
     Route: 048
     Dates: start: 20240426
  5. MUCOTRA SR [Concomitant]
     Indication: Prophylaxis
     Dosage: 150 MG, QD
     Route: 048
     Dates: start: 20230604, end: 20230918
  6. MUCOTRA SR [Concomitant]
     Dosage: 150 MG, QD
     Route: 048
     Dates: start: 20230919, end: 20240108
  7. NEPHRO [Concomitant]
     Indication: Blood phosphorus increased
     Dosage: 1420 MG, TID
     Route: 048
     Dates: start: 20230605, end: 20230824
  8. TASNA [Concomitant]
     Indication: Product used for unknown indication
     Dosage: 1000 MG, BID
     Route: 048
     Dates: start: 20230616, end: 20230713
  9. FEROBA YOU SR [Concomitant]
     Indication: Anaemia
     Dosage: 256 MG, BID
     Route: 048
     Dates: start: 20230616, end: 20231112
  10. FEROBA YOU SR [Concomitant]
     Dosage: 512 MG, QD
     Route: 048
     Dates: start: 20231113
  11. RENAMEZIN [Concomitant]
     Indication: Renal failure
     Dosage: 1 DF, BID
     Route: 048
     Dates: start: 20230623, end: 20230824
  12. METHYLPREDNISOLONE [Concomitant]
     Active Substance: METHYLPREDNISOLONE
     Indication: Prophylaxis
     Dosage: 4 MG, QD
     Route: 048
     Dates: start: 20230714, end: 20230907
  13. METHYLPREDNISOLONE [Concomitant]
     Active Substance: METHYLPREDNISOLONE
     Dosage: 4 MG, QD
     Route: 048
     Dates: start: 20230908, end: 20240108
  14. Epaminurad [Concomitant]
     Indication: Gout
     Route: 048
     Dates: start: 20230727, end: 20240108
  15. Epaminurad [Concomitant]
     Route: 048
     Dates: start: 20240110, end: 20240710
  16. COLCHIN [Concomitant]
     Indication: Gout
     Dosage: 0.6 MG, BID
     Route: 048
     Dates: start: 20240325, end: 20240327
  17. COLCHIN [Concomitant]
     Dosage: 0.6 MG, BID
     Route: 048
     Dates: start: 20240403, end: 20240404
  18. COLCHIN [Concomitant]
     Dosage: 0.6 MG, BID
     Route: 048
     Dates: start: 20240522, end: 20240523
  19. COLCHIN [Concomitant]
     Dosage: 0.6 MG, BID
     Route: 048
     Dates: start: 20240529, end: 20240530
  20. COLCHIN [Concomitant]
     Dosage: 0.6 MG, BID
     Route: 048
     Dates: start: 20240605, end: 20240606
  21. COLCHIN [Concomitant]
     Dosage: 0.6 MG, BID
     Route: 048
     Dates: start: 20240612, end: 20240613
  22. TAMCETON [Concomitant]
     Indication: Arthralgia
     Dosage: 40 MG, QD
     Route: 014
     Dates: start: 20230714, end: 20230714
  23. TAMCETON [Concomitant]
     Dosage: 40 MG, QD
     Route: 014
     Dates: start: 20230727, end: 20230727
  24. FEBUXOSTAT [Concomitant]
     Active Substance: FEBUXOSTAT
     Indication: Gout
     Route: 048
     Dates: start: 20230727, end: 20240108
  25. METHYLPREDNISOLONE [Concomitant]
     Active Substance: METHYLPREDNISOLONE
     Indication: Arthralgia
     Dosage: 8 MG, QD
     Route: 048
     Dates: start: 20231128, end: 20231128
  26. METHYLPREDNISOLONE [Concomitant]
     Active Substance: METHYLPREDNISOLONE
     Indication: Gout
     Dosage: 8 MG, BID
     Route: 048
     Dates: start: 20240325, end: 20240327
  27. JARDIANCE [Concomitant]
     Active Substance: EMPAGLIFLOZIN
     Indication: Renal failure
     Dosage: 10 MG, QD
     Route: 048
     Dates: start: 20240426
  28. BANAN [Concomitant]
     Active Substance: CEFPODOXIME PROXETIL
     Indication: C-reactive protein increased
     Dosage: 100 MG, BID
     Route: 048
     Dates: start: 20240702, end: 20240706
  29. NORZYME [Concomitant]
     Indication: Prophylaxis
     Dosage: 1 DF, TID
     Route: 048
     Dates: start: 20240702, end: 20240706
  30. FEBUXOSTAT [Concomitant]
     Active Substance: FEBUXOSTAT
     Indication: Product used for unknown indication
     Dosage: 40 MG, QD
     Route: 048
     Dates: start: 20240710

REACTIONS (7)
  - Ureterolithiasis [Recovered/Resolved]
  - Ureterolithiasis [Recovered/Resolved]
  - Otolithiasis [Recovering/Resolving]
  - Flank pain [Recovered/Resolved]
  - Abdominal pain [Recovered/Resolved]
  - Blood creatinine increased [Recovered/Resolved]
  - Urticaria [Recovering/Resolving]

NARRATIVE: CASE EVENT DATE: 20230718
